FAERS Safety Report 9607279 (Version 3)
Quarter: 2013Q4

REPORT INFORMATION
  Report Type: Spontaneous
  Country: IT (occurrence: IT)
  Receive Date: 20131009
  Receipt Date: 20131121
  Transmission Date: 20140711
  Serious: Yes (Hospitalization)
  Sender: FDA-Public Use
  Company Number: IT-BRISTOL-MYERS SQUIBB COMPANY-19472372

PATIENT
  Age: 85 Year
  Sex: Female

DRUGS (9)
  1. COUMADIN TABS 5 MG [Suspect]
     Indication: ATRIAL FIBRILLATION
     Route: 048
     Dates: start: 20120101, end: 20130912
  2. LANOXIN [Concomitant]
     Indication: ATRIAL FIBRILLATION
     Dosage: 0.125 MG TABS
     Route: 048
     Dates: start: 20120101, end: 20130912
  3. LOBIVON [Concomitant]
     Indication: PULMONARY ARTERIAL HYPERTENSION
     Dosage: 5MG TABS
     Route: 048
     Dates: start: 20120101, end: 20130912
  4. CATAPRESAN [Concomitant]
     Indication: PULMONARY ARTERIAL HYPERTENSION
     Dosage: CATAPRESAN TTS,2.5MG TRANSDERMAL PATCHES
     Route: 062
     Dates: start: 20120101, end: 20130912
  5. NOVORAPID [Concomitant]
     Indication: DIABETES MELLITUS
     Dosage: 100 U/ML INJECTION SOLUTION
     Route: 058
     Dates: start: 20120101, end: 20130912
  6. NOVOMIX [Concomitant]
     Indication: DIABETES MELLITUS
     Dosage: 100 U/ML INJECTION SOLUTION
     Route: 058
     Dates: start: 20120101, end: 20130912
  7. LANTUS [Concomitant]
     Indication: DIABETES MELLITUS
     Dosage: 100 U/ML INJECTION SOLN
     Route: 058
     Dates: start: 20120101, end: 20130912
  8. DEDIOL [Concomitant]
  9. OLMESARTAN MEDOXOMIL + HCTZ [Concomitant]
     Dosage: 1DF: 1TAB

REACTIONS (2)
  - Cerebral haemorrhage [Recovered/Resolved with Sequelae]
  - Head injury [Unknown]
